FAERS Safety Report 7684171-X (Version None)
Quarter: 2011Q3

REPORT INFORMATION
  Report Type: 
  Country: None (occurrence: None)
  Receive Date: 20110815
  Receipt Date: 20110802
  Transmission Date: 20111222
  Serious: Yes (Hospitalization)
  Sender: FDA-Public Use
  Company Number: US-SANOFI-AVENTIS-2011SA049428

PATIENT
  Age: 65 Year
  Sex: Female

DRUGS (6)
  1. LISINOPRIL [Suspect]
     Indication: HYPERTENSION
     Route: 065
  2. FUROSEMIDE [Suspect]
     Indication: HYPERTENSION
     Route: 065
  3. CLONIDINE [Suspect]
     Indication: HYPERTENSION
     Route: 065
  4. METOPROLOL TARTRATE [Suspect]
     Indication: HYPERTENSION
     Route: 065
  5. AMLODIPINE [Suspect]
     Indication: HYPERTENSION
     Route: 065
  6. HYDRALAZINE HCL [Suspect]
     Indication: HYPERTENSION
     Route: 065

REACTIONS (4)
  - DYSARTHRIA [None]
  - SINUS ARRHYTHMIA [None]
  - SINUS BRADYCARDIA [None]
  - VISION BLURRED [None]
